FAERS Safety Report 6403692-0 (Version None)
Quarter: 2009Q4

REPORT INFORMATION
  Report Type: 
  Country: None (occurrence: None)
  Receive Date: 20091016
  Receipt Date: 20091012
  Transmission Date: 20100525
  Serious: Yes (Other)
  Sender: FDA-Public Use
  Company Number: GB-ELI_LILLY_AND_COMPANY-GB200903003297

PATIENT
  Age: 64 Year
  Sex: Male
  Weight: 87 kg

DRUGS (10)
  1. ALIMTA [Suspect]
     Indication: MESOTHELIOMA
     Dosage: 500 MG/M2, EVERY THREE WEEKS
     Route: 065
     Dates: start: 20090112, end: 20090316
  2. CISPLATIN [Concomitant]
     Indication: MESOTHELIOMA
     Dosage: 75 MG/M2, EVERY THREE WEEKS
     Route: 065
     Dates: start: 20090112, end: 20090316
  3. FRUSEMIDE [Concomitant]
     Dosage: 20 MG, UNKNOWN
     Route: 065
     Dates: start: 20090223
  4. RAMIPRIL [Concomitant]
     Dosage: 10 MG, DAILY (1/D)
     Route: 065
  5. BENDROFLUMETHIAZIDE [Concomitant]
     Dosage: 2.5 MG, UNKNOWN
     Route: 065
  6. ATENOLOL [Concomitant]
     Dosage: 25 MG, UNKNOWN
     Route: 065
     Dates: end: 20090201
  7. ATENOLOL [Concomitant]
     Dosage: 50 MG, UNKNOWN
     Route: 065
     Dates: start: 20090201, end: 20090301
  8. ATENOLOL [Concomitant]
     Dosage: 100 MG, UNKNOWN
     Route: 065
     Dates: start: 20090301
  9. FOLIC ACID [Concomitant]
     Dosage: UNK, UNKNOWN
  10. VITAMIN B-12 [Concomitant]
     Dosage: UNK, UNKNOWN

REACTIONS (8)
  - CONJUNCTIVAL HAEMORRHAGE [None]
  - DIZZINESS [None]
  - EYE SWELLING [None]
  - HEADACHE [None]
  - HYPERTENSION [None]
  - NAUSEA [None]
  - PURPURA [None]
  - RASH [None]
